FAERS Safety Report 7556316 (Version 2)
Quarter: 2014Q1

REPORT INFORMATION
  Report Type: Spontaneous
  Country: US (occurrence: US)
  Receive Date: 20100827
  Receipt Date: 20140131
  Transmission Date: 20141002
  Serious: Yes (Other)
  Sender: FDA-Public Use
  Company Number: US-BAYER-201031538NA

PATIENT
  Age: 27 Year
  Sex: Female

DRUGS (2)
  1. YAZ [Suspect]
     Route: 048
     Dates: start: 200101, end: 201001
  2. YASMIN [Suspect]
     Route: 048
     Dates: start: 200101, end: 201001

REACTIONS (4)
  - Cholelithiasis [Unknown]
  - Pain [Unknown]
  - Gallbladder disorder [Unknown]
  - Cholecystitis chronic [None]
